FAERS Safety Report 5214383-6 (Version None)
Quarter: 2007Q1

REPORT INFORMATION
  Report Type: 
  Country: None (occurrence: None)
  Receive Date: 20070122
  Receipt Date: 20070119
  Transmission Date: 20070707
  Serious: Yes (Other)
  Sender: FDA-Public Use
  Company Number: JP-JPN-A200700107

PATIENT
  Age: 72 Year
  Sex: Female

DRUGS (6)
  1. ZOVIRAX [Suspect]
     Indication: HERPES ZOSTER
     Dosage: 250MG THREE TIMES PER DAY
     Route: 042
  2. LOXONIN [Concomitant]
     Route: 065
  3. ALINAMIN-F [Concomitant]
     Route: 065
  4. SAWACILLIN [Concomitant]
     Route: 048
  5. MUCOSTA [Concomitant]
     Route: 048
  6. CYANOCOBALAMIN [Concomitant]
     Route: 065

REACTIONS (5)
  - DYSARTHRIA [None]
  - GAIT DISTURBANCE [None]
  - PSYCHIATRIC SYMPTOM [None]
  - RESTLESSNESS [None]
  - URINARY INCONTINENCE [None]
